FAERS Safety Report 6240523-6 (Version None)
Quarter: 2009Q2

REPORT INFORMATION
  Report Type: 
  Country: None (occurrence: None)
  Receive Date: 20090623
  Receipt Date: 20090417
  Transmission Date: 20091009
  Serious: No
  Sender: FDA-Public Use
  Company Number: US-ASTRAZENECA-2009UW09762

PATIENT
  Age: 63 Year
  Sex: Male
  Weight: 82.1 kg

DRUGS (3)
  1. PULMICORT FLEXHALER [Suspect]
     Indication: ASTHMA
     Route: 055
  2. LISINOPRIL [Concomitant]
     Indication: BLOOD PRESSURE
  3. CLONAZEPAM [Concomitant]
     Indication: ANXIETY

REACTIONS (1)
  - BLOOD GLUCOSE INCREASED [None]
